FAERS Safety Report 20956245 (Version 1)
Quarter: 2022Q2

REPORT INFORMATION
  Report Type: Spontaneous
  Country: US (occurrence: US)
  Receive Date: 20220614
  Receipt Date: 20220614
  Transmission Date: 20220720
  Serious: No
  Sender: FDA-Public Use
  Company Number: US-drreddys-SPO/USA/22/0150828

PATIENT
  Age: 23 Year
  Sex: Female

DRUGS (1)
  1. ZENATANE [Suspect]
     Active Substance: ISOTRETINOIN
     Indication: Acne cystic
     Dosage: RMA ISSUE DATE: 06 DECEMBER 2021 10:47:48 AM, 06 JANUARY 2022 05:15:39 PM, 14 FEBRUARY 2022 02:36:08

REACTIONS (3)
  - Vision blurred [Unknown]
  - Myalgia [Unknown]
  - Product use in unapproved indication [Unknown]
